FAERS Safety Report 6223269-X (Version None)
Quarter: 2009Q2

REPORT INFORMATION
  Report Type: 
  Country: None (occurrence: None)
  Receive Date: 20090611
  Receipt Date: 20090601
  Transmission Date: 20091009
  Serious: Yes (Hospitalization, Other)
  Sender: FDA-Public Use
  Company Number: US-ELI_LILLY_AND_COMPANY-US200906000427

PATIENT
  Sex: Male

DRUGS (5)
  1. HUMULIN R [Suspect]
     Dosage: 20 U, EACH MORNING
     Dates: start: 19990101
  2. HUMULIN R [Suspect]
     Dosage: 24 U, EACH EVENING
     Dates: start: 19990101
  3. NOVOLOG [Concomitant]
     Indication: TYPE 2 DIABETES MELLITUS
     Dosage: 24 U, EACH MORNING
  4. NOVOLOG [Concomitant]
     Dosage: 22 U, UNK
  5. NOVOLOG [Concomitant]
     Dosage: 28 U, EACH EVENING

REACTIONS (6)
  - ACANTHOSIS NIGRICANS [None]
  - ACUTE LYMPHOCYTIC LEUKAEMIA [None]
  - DECREASED INSULIN REQUIREMENT [None]
  - HYPOKINESIA [None]
  - INSULIN RESISTANCE [None]
  - MEMORY IMPAIRMENT [None]
